FAERS Safety Report 7188234-7 (Version None)
Quarter: 2010Q4

REPORT INFORMATION
  Report Type: 
  Country: None (occurrence: None)
  Receive Date: 20101222
  Receipt Date: 20100710
  Transmission Date: 20110411
  Serious: Yes (Hospitalization)
  Sender: FDA-Public Use
  Company Number: US-AMGEN-KDL423519

PATIENT

DRUGS (10)
  1. ENBREL [Suspect]
     Indication: RHEUMATOID ARTHRITIS
     Dosage: 50 MG, Q2WK
     Dates: start: 20050101, end: 20100706
  2. METHOTREXATE [Concomitant]
     Dosage: UNK UNK, UNK
  3. CITALOPRAM [Concomitant]
     Dosage: UNK UNK, UNK
  4. TOLTERODINE TARTRATE [Concomitant]
     Dosage: UNK UNK, UNK
  5. DILTIAZEM HYDROCHLORIDE [Concomitant]
     Dosage: UNK UNK, UNK
  6. MICARDIS [Concomitant]
     Dosage: UNK UNK, UNK
  7. OMEPRAZOLE [Concomitant]
     Dosage: UNK UNK, UNK
  8. SIMVASTATIN [Concomitant]
     Dosage: UNK UNK, UNK
  9. SULINDAC [Concomitant]
     Dosage: UNK UNK, UNK
  10. TRAZODONE HCL [Concomitant]
     Dosage: UNK UNK, UNK

REACTIONS (2)
  - ERYSIPELAS [None]
  - PNEUMONIA [None]
